FAERS Safety Report 5721283-1 (Version None)
Quarter: 2008Q2

REPORT INFORMATION
  Report Type: 
  Country: None (occurrence: None)
  Receive Date: 20080429
  Receipt Date: 20080424
  Transmission Date: 20081010
  Serious: Yes (Other)
  Sender: FDA-Public Use
  Company Number: FR-BRISTOL-MYERS SQUIBB COMPANY-14166490

PATIENT
  Age: 44 Year
  Sex: Male

DRUGS (1)
  1. SUSTIVA [Suspect]
     Dosage: THE DAILY DOSAGE OF SUSTIVA HAS BEEN REDUCED TO 400 MG
     Dates: start: 20060101

REACTIONS (1)
  - HEPATIC NEOPLASM [None]
